FAERS Safety Report 19513889 (Version 1)
Quarter: 2021Q3

REPORT INFORMATION
  Report Type: Spontaneous
  Country: AU (occurrence: AU)
  Receive Date: 20210709
  Receipt Date: 20210709
  Transmission Date: 20211014
  Serious: Yes (Other)
  Sender: FDA-Public Use
  Company Number: AU-PFIZER INC-2021569358

PATIENT
  Sex: Male

DRUGS (1)
  1. CELEBREX [Suspect]
     Active Substance: CELECOXIB
     Indication: TENOSYNOVITIS
     Dosage: 100 MG
     Dates: start: 20210131, end: 20210213

REACTIONS (15)
  - Antinuclear antibody increased [Recovering/Resolving]
  - Insomnia [Recovering/Resolving]
  - Malaise [Unknown]
  - Inflammatory marker increased [Unknown]
  - Tinnitus [Recovering/Resolving]
  - Palpitations [Unknown]
  - Head discomfort [Recovering/Resolving]
  - Ocular hyperaemia [Recovered/Resolved]
  - Vein disorder [Recovering/Resolving]
  - Overdose [Unknown]
  - Noninfective encephalitis [Recovering/Resolving]
  - Hallucination [Unknown]
  - Decreased appetite [Recovering/Resolving]
  - Off label use [Unknown]
  - Cerebral disorder [Recovering/Resolving]

NARRATIVE: CASE EVENT DATE: 20210131
